FAERS Safety Report 6586379-3 (Version None)
Quarter: 2010Q1

REPORT INFORMATION
  Report Type: 
  Country: None (occurrence: None)
  Receive Date: 20100217
  Receipt Date: 20090304
  Transmission Date: 20100710
  Serious: No
  Sender: FDA-Public Use
  Company Number: US-ALLERGAN-0902735US

PATIENT
  Sex: Female

DRUGS (2)
  1. BOTOX COSMETIC [Suspect]
     Indication: SKIN WRINKLING
     Dosage: 22 UNITS, SINGLE
     Route: 030
     Dates: start: 20090212, end: 20090212
  2. LYRICA [Concomitant]
     Indication: BACK PAIN
     Dosage: 125 MG, QHS
     Route: 030

REACTIONS (2)
  - NAUSEA [None]
  - VERTIGO [None]
